FAERS Safety Report 24409982 (Version 1)
Quarter: 2024Q4

REPORT INFORMATION
  Report Type: Spontaneous
  Country: CO (occurrence: CO)
  Receive Date: 20241008
  Receipt Date: 20241008
  Transmission Date: 20250115
  Serious: Yes (Hospitalization, Other)
  Sender: BOEHRINGER INGELHEIM
  Company Number: CO-BoehringerIngelheim-2024-BI-054532

PATIENT
  Age: 85 Year
  Sex: Female

DRUGS (1)
  1. JARDIANCE [Suspect]
     Active Substance: EMPAGLIFLOZIN
     Indication: Type 2 diabetes mellitus

REACTIONS (4)
  - Septic shock [Recovered/Resolved with Sequelae]
  - Cardiac failure [Unknown]
  - Urinary tract infection [Recovered/Resolved with Sequelae]
  - Renal failure [Unknown]
